FAERS Safety Report 17221934 (Version 1)
Quarter: 2020Q1

REPORT INFORMATION
  Report Type: Spontaneous
  Country: US (occurrence: US)
  Receive Date: 20200101
  Receipt Date: 20200101
  Transmission Date: 20200409
  Serious: Yes (Other)
  Sender: FDA-Public Use
  Company Number: US-TORRENT-00009581

PATIENT
  Age: 69 Year
  Sex: Female

DRUGS (6)
  1. VENLAFAXINE [Concomitant]
     Active Substance: VENLAFAXINE HYDROCHLORIDE
     Indication: DEPRESSION
     Dosage: ONE CAPSULE BY MOUTH TWICE DAILY
     Route: 048
     Dates: start: 2005, end: 20190404
  2. KLONOPIN [Concomitant]
     Active Substance: CLONAZEPAM
     Indication: ANXIETY
     Dosage: TWICE DAILY,  BY MOUTH
  3. QUETIAPINE. [Suspect]
     Active Substance: QUETIAPINE
     Indication: DEPRESSION
     Dosage: UNKNOWN
  4. VENLAFAXINE [Concomitant]
     Active Substance: VENLAFAXINE HYDROCHLORIDE
     Indication: DEPRESSION
     Dosage: ONE CAPSULE BY MOUTH TWICE DAILY
     Dates: start: 20190404, end: 201905
  5. VENLAFAXINE [Concomitant]
     Active Substance: VENLAFAXINE HYDROCHLORIDE
     Indication: DEPRESSION
     Dosage: ONE CAPSULE BY MOUTH TWICE DAILY
     Dates: start: 201906
  6. SEROQUEL [Concomitant]
     Active Substance: QUETIAPINE FUMARATE
     Indication: INSOMNIA
     Dosage: BY MOUTH ONCE DAILY AT BEDTIME

REACTIONS (2)
  - Hallucination [Unknown]
  - Nightmare [Unknown]
